FAERS Safety Report 7832154-9 (Version None)
Quarter: 2011Q4

REPORT INFORMATION
  Report Type: 
  Country: None (occurrence: None)
  Receive Date: 20111022
  Receipt Date: 20111005
  Transmission Date: 20120403
  Serious: Yes (Hospitalization)
  Sender: FDA-Public Use
  Company Number: US-BAYER-2011-050419

PATIENT
  Age: 27 Year
  Sex: Female
  Weight: 92 kg

DRUGS (5)
  1. YAZ [Suspect]
     Indication: ORAL CONTRACEPTION
  2. ALEVE [Concomitant]
  3. IBUPROFEN (ADVIL) [Concomitant]
  4. YAZ [Suspect]
     Indication: ACNE
     Dosage: UNK
     Dates: start: 20080101, end: 20090101
  5. ZITHROMAX [Concomitant]
     Dosage: UNK
     Dates: start: 20090325, end: 20090329

REACTIONS (4)
  - GALLBLADDER NON-FUNCTIONING [None]
  - PAIN [None]
  - GALLBLADDER DISORDER [None]
  - CHOLECYSTITIS ACUTE [None]
